FAERS Safety Report 6838839-5 (Version None)
Quarter: 2010Q3

REPORT INFORMATION
  Report Type: 
  Country: None (occurrence: None)
  Receive Date: 20100702
  Receipt Date: 20100624
  Transmission Date: 20110219
  Serious: Yes (Hospitalization, Other)
  Sender: FDA-Public Use
  Company Number: 2010-2254

PATIENT
  Sex: Male

DRUGS (3)
  1. SOMATULINE AUTOSOLUTION 120MG (LANREOTIDE AUTOGEL) (LANREOTIDE) (LANRE [Suspect]
     Indication: CHRONIC MYELOID LEUKAEMIA
     Dosage: (120 MG, INTRAMUSCULAR)
     Route: 030
     Dates: start: 20090602
  2. SOMATULINE AUTOSOLUTION 120MG (LANREOTIDE AUTOGEL) (LANREOTIDE) (LANRE [Suspect]
     Indication: METASTASES TO LIVER
     Dosage: (120 MG, INTRAMUSCULAR)
     Route: 030
     Dates: start: 20090602
  3. SOMATULINE AUTOSOLUTION 120MG (LANREOTIDE AUTOGEL) (LANREOTIDE) (LANRE [Suspect]
     Indication: PANCREATIC CARCINOMA
     Dosage: (120 MG, INTRAMUSCULAR)
     Route: 030
     Dates: start: 20090602

REACTIONS (4)
  - CHRONIC MYELOID LEUKAEMIA [None]
  - MALIGNANT NEOPLASM PROGRESSION [None]
  - OFF LABEL USE [None]
  - PANCREATIC CARCINOMA METASTATIC [None]
